FAERS Safety Report 9227227 (Version 2)
Quarter: 2013Q2

REPORT INFORMATION
  Report Type: Spontaneous
  Country: FR (occurrence: FR)
  Receive Date: 20130412
  Receipt Date: 20130419
  Transmission Date: 20140414
  Serious: Yes (Hospitalization)
  Sender: FDA-Public Use
  Company Number: FR-SANOFI-AVENTIS-2013SA036969

PATIENT
  Age: 84 Year
  Sex: Female

DRUGS (19)
  1. LOVENOX [Suspect]
     Indication: THROMBOSIS PROPHYLAXIS
     Route: 058
     Dates: start: 201209, end: 201210
  2. LOVENOX [Suspect]
     Indication: DEEP VEIN THROMBOSIS
     Route: 058
     Dates: start: 201209, end: 201210
  3. LOVENOX [Suspect]
     Indication: PROPHYLAXIS
     Route: 058
     Dates: start: 201209, end: 201210
  4. LOVENOX [Suspect]
     Indication: THROMBOSIS PROPHYLAXIS
     Route: 058
     Dates: start: 201210, end: 201210
  5. LOVENOX [Suspect]
     Indication: DEEP VEIN THROMBOSIS
     Route: 058
     Dates: start: 201210, end: 201210
  6. LOVENOX [Suspect]
     Indication: PROPHYLAXIS
     Route: 058
     Dates: start: 201210, end: 201210
  7. LOVENOX [Suspect]
     Indication: THROMBOSIS PROPHYLAXIS
     Route: 058
     Dates: start: 201210, end: 20121221
  8. LOVENOX [Suspect]
     Indication: DEEP VEIN THROMBOSIS
     Route: 058
     Dates: start: 201210, end: 20121221
  9. LOVENOX [Suspect]
     Indication: PROPHYLAXIS
     Route: 058
     Dates: start: 201210, end: 20121221
  10. CORDARONE [Suspect]
     Indication: CARDIAC FAILURE
     Dosage: FREQUENCY: 200MG/DAY, 5 DAYS PER WEEK
     Route: 048
     Dates: end: 20130104
  11. PREVISCAN [Suspect]
     Indication: THROMBOSIS PROPHYLAXIS
     Dosage: TAKEN FROM: END OF NOV 12
     Route: 048
     Dates: start: 201211, end: 20121221
  12. PREVISCAN [Suspect]
     Indication: THROMBOSIS PROPHYLAXIS
     Route: 048
     Dates: end: 20120915
  13. CARDENSIEL [Suspect]
     Indication: CARDIAC FAILURE
     Route: 048
     Dates: end: 20121031
  14. TEMERIT [Suspect]
     Indication: CARDIAC FAILURE
     Route: 048
     Dates: start: 20121031, end: 20130114
  15. ATACAND [Concomitant]
     Dosage: STRENGTH: 8 MG
     Route: 048
  16. LYRICA [Concomitant]
     Dosage: STRENGTH: 25 MG
     Route: 048
  17. DEROXAT [Concomitant]
     Dosage: STRENGTH: 20 MG
     Route: 048
  18. DIAMICRON [Concomitant]
     Dosage: STRENGTH: 30 MG
     Route: 048
  19. TRANSIPEG [Concomitant]
     Indication: CONSTIPATION
     Dosage: FORM: POWDER?STRENGTH: 5.9 G
     Route: 048

REACTIONS (4)
  - Fall [Recovered/Resolved]
  - Bradycardia [Recovered/Resolved]
  - Haematoma [Recovered/Resolved]
  - Anaemia [Recovered/Resolved]
